FAERS Safety Report 4584091-3 (Version None)
Quarter: 2005Q1

REPORT INFORMATION
  Report Type: 
  Country: None (occurrence: None)
  Receive Date: 20050125
  Receipt Date: 20041206
  Transmission Date: 20050727
  Serious: No
  Sender: FDA-Public Use
  Company Number: USA041182776

PATIENT
  Age: 73 Year
  Sex: Female
  Weight: 53 kg

DRUGS (6)
  1. FORTEO [Suspect]
     Indication: OSTEOPOROSIS
     Dosage: 20 UG/1 DAY
     Dates: start: 20010501
  2. MEVACOR [Concomitant]
  3. MULTIVITAMIN [Concomitant]
  4. OSCAL (CALCIUM CARBONATE) [Concomitant]
  5. ASPIRIN [Concomitant]
  6. GARLIQUE (GARLIC) [Concomitant]

REACTIONS (4)
  - BACK PAIN [None]
  - INJECTION SITE HAEMORRHAGE [None]
  - INJECTION SITE PAIN [None]
  - PAINFUL RESPIRATION [None]
